FAERS Safety Report 24215114 (Version 1)
Quarter: 2024Q3

REPORT INFORMATION
  Report Type: Spontaneous
  Country: AU (occurrence: AU)
  Receive Date: 20240816
  Receipt Date: 20240816
  Transmission Date: 20241017
  Serious: Yes (Life-Threatening, Hospitalization, Other)
  Sender: BRISTOL MYERS SQUIBB
  Company Number: AU-BRISTOL-MYERS SQUIBB COMPANY-2024-125120

PATIENT
  Age: 76 Year
  Sex: Male

DRUGS (1)
  1. OPDUALAG [Suspect]
     Active Substance: NIVOLUMAB\RELATLIMAB-RMBW
     Indication: Metastatic malignant melanoma

REACTIONS (4)
  - Immune-mediated myocarditis [Unknown]
  - Atrioventricular block complete [Unknown]
  - Immune-mediated myositis [Unknown]
  - Immune-mediated hepatitis [Unknown]
